FAERS Safety Report 18276536 (Version 3)
Quarter: 2021Q1

REPORT INFORMATION
  Report Type: Report from Study
  Country: US (occurrence: US)
  Receive Date: 20200917
  Receipt Date: 20210305
  Transmission Date: 20210419
  Serious: No
  Sender: FDA-Public Use
  Company Number: NVSC2020US253655

PATIENT
  Age: 47 Year
  Sex: Male

DRUGS (3)
  1. ENTRESTO [Suspect]
     Active Substance: SACUBITRIL\VALSARTAN
     Indication: PRODUCT USED FOR UNKNOWN INDICATION
     Dosage: 50 MG, BID (24/26 MG)
     Route: 048
     Dates: start: 20200811
  2. ENTRESTO [Suspect]
     Active Substance: SACUBITRIL\VALSARTAN
     Dosage: 1 DF, BID (97/103 MG)
     Route: 048
     Dates: start: 20200811
  3. ENTRESTO [Suspect]
     Active Substance: SACUBITRIL\VALSARTAN
     Dosage: 100 MG, BID (49/51 MG)
     Route: 048
     Dates: start: 20200811

REACTIONS (5)
  - Anger [Unknown]
  - Heart rate decreased [Unknown]
  - Blood pressure increased [Recovering/Resolving]
  - Ejection fraction abnormal [Unknown]
  - Hernia [Unknown]

NARRATIVE: CASE EVENT DATE: 202008
